FAERS Safety Report 12079333 (Version 1)
Quarter: 2016Q1

REPORT INFORMATION
  Report Type: Spontaneous
  Country: BR (occurrence: BR)
  Receive Date: 20160216
  Receipt Date: 20160216
  Transmission Date: 20160526
  Serious: Yes (Hospitalization, Other)
  Sender: FDA-Public Use
  Company Number: BR-NOVOPROD-479714

PATIENT
  Sex: Male

DRUGS (1)
  1. TRESIBA FLEXTOUCH U100 [Suspect]
     Active Substance: INSULIN DEGLUDEC
     Indication: DIABETES MELLITUS
     Dosage: UNK
     Route: 065
     Dates: start: 2014

REACTIONS (2)
  - Hypoglycaemic coma [Recovered/Resolved]
  - Renal transplant [Unknown]

NARRATIVE: CASE EVENT DATE: 2015
